FAERS Safety Report 4804290-2 (Version None)
Quarter: 2005Q4

REPORT INFORMATION
  Report Type: 
  Country: None (occurrence: None)
  Receive Date: 20051017
  Receipt Date: 20051004
  Transmission Date: 20060501
  Serious: Yes (Other)
  Sender: FDA-Public Use
  Company Number: 2005136936

PATIENT
  Age: 57 Year
  Sex: Female

DRUGS (6)
  1. NICORETTE [Suspect]
     Indication: SMOKING CESSATION THERAPY
     Dosage: 15 MG EVERY 16 HOURS, TRANSDERMAL
     Route: 062
     Dates: start: 20050124
  2. ISOSORBIDE MONONITRATE [Concomitant]
  3. ATORVASTATIN CALCIUM [Concomitant]
  4. OMEPRAZOLE [Concomitant]
  5. DIOVOL (ALUMINUM HYDROXIDE, DIMETICONE, MAGNESIUM HYDROXIDE) [Concomitant]
  6. METOPROLOL TARTRATE [Concomitant]

REACTIONS (1)
  - PAIN IN EXTREMITY [None]
